FAERS Safety Report 7284059-2 (Version None)
Quarter: 2011Q1

REPORT INFORMATION
  Report Type: 
  Country: None (occurrence: None)
  Receive Date: 20110209
  Receipt Date: 20110204
  Transmission Date: 20110831
  Serious: Yes (Hospitalization)
  Sender: FDA-Public Use
  Company Number: US-ABBOTT-11P-163-0703166-00

PATIENT
  Age: 46 Year
  Sex: Female

DRUGS (1)
  1. HUMIRA [Suspect]
     Indication: CROHN'S DISEASE
     Route: 058

REACTIONS (6)
  - FUNGAL SKIN INFECTION [None]
  - DIARRHOEA [None]
  - RASH [None]
  - HAEMATOCHEZIA [None]
  - ABDOMINAL PAIN [None]
  - CROHN'S DISEASE [None]
